FAERS Safety Report 4818377-1 (Version None)
Quarter: 2005Q4

REPORT INFORMATION
  Report Type: 
  Country: None (occurrence: None)
  Receive Date: 20051031
  Receipt Date: 20051017
  Transmission Date: 20060501
  Serious: Yes (Other)
  Sender: FDA-Public Use
  Company Number: 2005143184

PATIENT
  Sex: Female

DRUGS (1)
  1. BENGAY ULTRA STRENGTH PATCH (MENTHOL) [Suspect]
     Indication: BACK PAIN
     Dosage: 1 PATCH, INHALATION
     Dates: start: 20051016

REACTIONS (2)
  - DYSPNOEA [None]
  - VOMITING [None]
